FAERS Safety Report 15390405 (Version 3)
Quarter: 2018Q4

REPORT INFORMATION
  Report Type: Report from Study
  Country: FR (occurrence: FR)
  Receive Date: 20180917
  Receipt Date: 20181014
  Transmission Date: 20190204
  Serious: Yes (Hospitalization, Other)
  Sender: FDA-Public Use
  Company Number: FR-BRISTOL-MYERS SQUIBB COMPANY-BMS-2018-083796

PATIENT
  Age: 83 Year
  Sex: Male

DRUGS (3)
  1. HEPARIN [Suspect]
     Active Substance: HEPARIN SODIUM
     Indication: PRODUCT USED FOR UNKNOWN INDICATION
     Dosage: UNK
     Route: 065
     Dates: end: 20180803
  2. ORGARAN [Concomitant]
     Active Substance: DANAPAROID SODIUM
     Indication: PRODUCT USED FOR UNKNOWN INDICATION
     Dosage: 1 DF, UNK
     Route: 065
     Dates: start: 20180803
  3. NIVOLUMAB [Suspect]
     Active Substance: NIVOLUMAB
     Indication: RENAL CELL CARCINOMA
     Dosage: 1 DF=240 (UNITS NOS), Q2WK
     Route: 065
     Dates: start: 20180725, end: 20180725

REACTIONS (3)
  - Thrombocytopenia [Unknown]
  - General physical health deterioration [Unknown]
  - Superior vena cava syndrome [Not Recovered/Not Resolved]

NARRATIVE: CASE EVENT DATE: 20180725
